FAERS Safety Report 15990545 (Version 2)
Quarter: 2019Q1

REPORT INFORMATION
  Report Type: Spontaneous
  Country: VE (occurrence: VE)
  Receive Date: 20190221
  Receipt Date: 20190226
  Transmission Date: 20190418
  Serious: Yes (Other)
  Sender: FDA-Public Use
  Company Number: VE-PFIZER INC-2019075356

PATIENT
  Age: 59 Year
  Sex: Female

DRUGS (1)
  1. IBUPROFEN. [Suspect]
     Active Substance: IBUPROFEN
     Dosage: UNK

REACTIONS (4)
  - Hypersensitivity [Unknown]
  - Skin disorder [Recovering/Resolving]
  - Aspirin-exacerbated respiratory disease [Recovering/Resolving]
  - Condition aggravated [Recovering/Resolving]
